FAERS Safety Report 19712724 (Version 1)
Quarter: 2021Q3

REPORT INFORMATION
  Report Type: Report from Study
  Country: US (occurrence: US)
  Receive Date: 20210816
  Receipt Date: 20210816
  Transmission Date: 20211014
  Serious: Yes (Life-Threatening, Other)
  Sender: FDA-Public Use
  Company Number: US-SEATTLE GENETICS-2021SGN03528

PATIENT
  Sex: Female

DRUGS (1)
  1. TUCATINIB [Suspect]
     Active Substance: TUCATINIB
     Indication: PRODUCT USED FOR UNKNOWN INDICATION
     Dosage: 150 MG

REACTIONS (9)
  - Alanine aminotransferase abnormal [Unknown]
  - Near death experience [Unknown]
  - Aspartate aminotransferase abnormal [Unknown]
  - Liver function test abnormal [Unknown]
  - Hypersomnia [Unknown]
  - Aspartate aminotransferase increased [Unknown]
  - Brain neoplasm [Unknown]
  - Alanine aminotransferase increased [Unknown]
  - Diarrhoea [Unknown]
